FAERS Safety Report 8802805 (Version 2)
Quarter: 2012Q4

REPORT INFORMATION
  Report Type: 
  Country: US (occurrence: US)
  Receive Date: 20120921
  Receipt Date: 20121002
  Transmission Date: 20130627
  Serious: Yes (Hospitalization, Other)
  Sender: FDA-Public Use
  Company Number: US-009507513-2009-200464-NL

PATIENT

DRUGS (9)
  1. NUVARING [Suspect]
     Indication: CONTRACEPTION
     Dosage: CONTINUING: NO
     Route: 067
     Dates: start: 20061010, end: 200803
  2. NUVARING [Suspect]
     Indication: MENSTRUAL CYCLE MANAGEMENT
  3. XANAX [Concomitant]
     Indication: ANXIETY
     Dosage: EVERY 8 HOURS PRN
     Route: 048
     Dates: start: 20071012
  4. ADVIL [Concomitant]
     Indication: PAIN
     Dosage: UNK UNK, PRN
  5. SKELAXIN [Concomitant]
     Indication: NECK PAIN
     Dosage: PRN
     Dates: start: 20080311
  6. AMOXICILLIN [Concomitant]
     Indication: PHARYNGITIS STREPTOCOCCAL
  7. BACLOFEN [Concomitant]
     Indication: BACK PAIN
     Dosage: PRN
     Dates: start: 20070510, end: 20090311
  8. LEXAPRO [Concomitant]
     Indication: DEPRESSION
     Dosage: 10 MG BID QD
     Route: 048
     Dates: start: 20061023, end: 20070702
  9. NORCO [Concomitant]
     Indication: PRODUCT USED FOR UNKNOWN INDICATION
     Dosage: Q 6-8 H
     Dates: start: 20080513

REACTIONS (13)
  - Hypokalaemia [Unknown]
  - Pulmonary embolism [Recovered/Resolved]
  - Acute sinusitis [Not Recovered/Not Resolved]
  - Irritable bowel syndrome [Unknown]
  - Off label use [Unknown]
  - Dislocation of vertebra [Unknown]
  - Neck pain [Unknown]
  - Spinal pain [Unknown]
  - Dislocation of vertebra [Unknown]
  - Facet joint syndrome [Unknown]
  - Myalgia [Unknown]
  - Intervertebral disc disorder [Unknown]
  - Lumbarisation [Unknown]
